FAERS Safety Report 18457876 (Version 15)
Quarter: 2022Q1

REPORT INFORMATION
  Report Type: Report from Study
  Country: US (occurrence: US)
  Receive Date: 20201103
  Receipt Date: 20220216
  Transmission Date: 20220423
  Serious: Yes (Hospitalization)
  Sender: FDA-Public Use
  Company Number: NVSC2020US292087

PATIENT
  Age: 56 Year
  Sex: Male
  Weight: 73.3 kg

DRUGS (5)
  1. CISPLATIN [Suspect]
     Active Substance: CISPLATIN
     Indication: Non-Hodgkin^s lymphoma refractory
     Dosage: 139_MILLIGRAM_ONCE
     Route: 042
     Dates: start: 20200904
  2. GEMCITABINE [Suspect]
     Active Substance: GEMCITABINE
     Indication: Non-Hodgkin^s lymphoma refractory
     Dosage: 1862_MILLIGRAM_ONCE
     Route: 042
     Dates: start: 20200904
  3. RITUXIMAB [Suspect]
     Active Substance: RITUXIMAB
     Indication: Non-Hodgkin^s lymphoma refractory
     Dosage: 700_MILLIGRAM_ONCE
     Route: 042
     Dates: start: 20200904
  4. TRAMADOL [Concomitant]
     Active Substance: TRAMADOL
     Indication: Headache
     Dosage: UNK
     Route: 065
     Dates: start: 20200924, end: 20201027
  5. TRAMADOL [Concomitant]
     Active Substance: TRAMADOL
     Indication: Pain in extremity

REACTIONS (1)
  - Epistaxis [Recovered/Resolved]

NARRATIVE: CASE EVENT DATE: 20201027
